FAERS Safety Report 7175852-5 (Version None)
Quarter: 2010Q4

REPORT INFORMATION
  Report Type: 
  Country: None (occurrence: None)
  Receive Date: 20101220
  Receipt Date: 20100414
  Transmission Date: 20110411
  Serious: No
  Sender: FDA-Public Use
  Company Number: US-AMGEN-TCS404125

PATIENT

DRUGS (8)
  1. ENBREL [Suspect]
     Indication: RHEUMATOID ARTHRITIS
     Dosage: 50 MG, QWK
     Route: 030
     Dates: start: 20100205
  2. LEFLUNOMIDE [Suspect]
     Dosage: 20 MG, QD
     Route: 048
     Dates: start: 20100205
  3. METHOTREXATE [Concomitant]
     Dosage: UNK UNK, UNK
     Dates: start: 20080602, end: 20100205
  4. TRAMADOL HCL [Concomitant]
     Dosage: UNK UNK, UNK
     Dates: start: 20080101
  5. ATENOLOL [Concomitant]
     Dosage: UNK UNK, UNK
     Dates: start: 20090101
  6. LORAZEPAM [Concomitant]
     Dosage: UNK UNK, UNK
     Dates: start: 20090520
  7. PREDNISONE [Concomitant]
     Dosage: UNK UNK, UNK
     Dates: start: 20080101
  8. CELECOXIB [Concomitant]
     Dosage: UNK UNK, UNK
     Dates: start: 20090101

REACTIONS (6)
  - DYSPNOEA [None]
  - INJECTION SITE ERYTHEMA [None]
  - INJECTION SITE PRURITUS [None]
  - NASOPHARYNGITIS [None]
  - RASH PAPULAR [None]
  - RASH PRURITIC [None]
